FAERS Safety Report 6771253-X (Version None)
Quarter: 2010Q2

REPORT INFORMATION
  Report Type: 
  Country: None (occurrence: None)
  Receive Date: 20100616
  Receipt Date: 20100603
  Transmission Date: 20101027
  Serious: Yes (Hospitalization)
  Sender: FDA-Public Use
  Company Number: AU-ELI_LILLY_AND_COMPANY-AU201005001976

PATIENT
  Sex: Male
  Weight: 100 kg

DRUGS (16)
  1. PEMETREXED [Suspect]
     Indication: NON-SMALL CELL LUNG CANCER STAGE III
     Dosage: 1100 MG, DAYS 1,22,43
     Route: 042
     Dates: start: 20091214
  2. PEMETREXED [Suspect]
     Dosage: 1100 MG, EVERY 21 DAYS
     Route: 042
     Dates: start: 20100301, end: 20100510
  3. CISPLATIN [Suspect]
     Indication: NON-SMALL CELL LUNG CANCER
     Dosage: 165 MG, DAYS 1,22,43
     Route: 042
     Dates: start: 20091214
  4. RADIATION [Suspect]
     Indication: NON-SMALL CELL LUNG CANCER
     Dosage: 66 GY IN 33 FRACTIONS
     Dates: start: 20091214
  5. FOLIC ACID [Concomitant]
     Indication: PROPHYLAXIS
     Dates: start: 20091208
  6. VITAMIN B-12 [Concomitant]
     Indication: PROPHYLAXIS
     Dates: start: 20091208
  7. DEXAMETHASONE [Concomitant]
     Indication: PROPHYLAXIS
     Dates: start: 20091213
  8. SPIRIVA [Concomitant]
     Indication: EMPHYSEMA
     Dates: start: 20030101
  9. VENTOLIN                                /SCH/ [Concomitant]
     Indication: ASTHMA
     Dates: start: 19890101
  10. SYMBICORT [Concomitant]
     Indication: ASTHMA
     Dates: start: 20030101
  11. CELEBREX [Concomitant]
     Indication: OSTEOARTHRITIS
     Dates: start: 19990101
  12. FLOMAXTRA [Concomitant]
     Indication: BENIGN PROSTATIC HYPERPLASIA
     Dates: start: 20040101
  13. NEXIUM [Concomitant]
     Indication: GASTROOESOPHAGEAL REFLUX DISEASE
     Dates: start: 20040101
  14. ACETAMINOPHEN AND CODEINE PHOSPHATE [Concomitant]
     Indication: PAIN
     Dates: start: 20030101
  15. COLOXYL WITH SENNA [Concomitant]
     Indication: CONSTIPATION
     Dates: start: 20090101
  16. PREDNISOLONE [Concomitant]
     Dosage: PULSE

REACTIONS (1)
  - DYSPNOEA [None]
